FAERS Safety Report 17313788 (Version 1)
Quarter: 2020Q1

REPORT INFORMATION
  Report Type: Spontaneous
  Country: US (occurrence: US)
  Receive Date: 20200124
  Receipt Date: 20200124
  Transmission Date: 20200409
  Serious: Yes (Other)
  Sender: FDA-Public Use
  Company Number: US-MICRO LABS LIMITED-ML2020-00236

PATIENT
  Age: 45 Year
  Sex: Female
  Weight: 92.2 kg

DRUGS (1)
  1. APIXABAN [Suspect]
     Active Substance: APIXABAN
     Indication: ATRIAL FIBRILLATION
     Dosage: 2.5 MG BID
     Route: 048

REACTIONS (2)
  - Drug ineffective [Unknown]
  - Thrombotic stroke [Unknown]
